FAERS Safety Report 4770178-9 (Version None)
Quarter: 2005Q3

REPORT INFORMATION
  Report Type: 
  Country: None (occurrence: None)
  Receive Date: 20050915
  Receipt Date: 20050901
  Transmission Date: 20060218
  Serious: Yes (Other)
  Sender: FDA-Public Use
  Company Number: PHBS2005DE13362

PATIENT
  Age: 64 Year
  Sex: Female

DRUGS (4)
  1. PAMIDRONATE DISODIUM [Suspect]
     Route: 042
     Dates: start: 19970101, end: 20030101
  2. ZOLEDRONATE [Suspect]
     Route: 042
     Dates: start: 20030101
  3. TOREMIFENE [Concomitant]
     Route: 065
     Dates: start: 19970101
  4. FEMARA [Concomitant]
     Route: 065
     Dates: start: 19970101

REACTIONS (6)
  - ASEPTIC NECROSIS BONE [None]
  - JAW DISORDER [None]
  - JAW OPERATION [None]
  - LOCAL SWELLING [None]
  - TOOTH EXTRACTION [None]
  - WOUND DEHISCENCE [None]
